FAERS Safety Report 23449338 (Version 1)
Quarter: 2024Q1

REPORT INFORMATION
  Report Type: Spontaneous
  Country: US (occurrence: US)
  Receive Date: 20240129
  Receipt Date: 20240129
  Transmission Date: 20240409
  Serious: Yes (Hospitalization)
  Sender: FDA-Public Use
  Company Number: US-ABBVIE-5607419

PATIENT
  Sex: Male

DRUGS (2)
  1. DALVANCE [Suspect]
     Active Substance: DALBAVANCIN
     Indication: Infection
     Route: 065
  2. DAPTOMYCIN [Concomitant]
     Active Substance: DAPTOMYCIN
     Indication: Product used for unknown indication

REACTIONS (3)
  - Hospitalisation [Unknown]
  - Laboratory test abnormal [Unknown]
  - Diarrhoea [Unknown]
